FAERS Safety Report 5701076-1 (Version None)
Quarter: 2008Q2

REPORT INFORMATION
  Report Type: 
  Country: None (occurrence: None)
  Receive Date: 20080410
  Receipt Date: 20080327
  Transmission Date: 20081010
  Serious: Yes (Hospitalization)
  Sender: FDA-Public Use
  Company Number: GB-AMGEN-US267406

PATIENT
  Sex: Female

DRUGS (12)
  1. ENBREL [Suspect]
     Indication: DRUG USE FOR UNKNOWN INDICATION
     Dosage: UNKNOWN
     Route: 058
     Dates: start: 20070101
  2. CORTICOSTEROID NOS [Suspect]
     Dosage: HIGH DOSE
     Route: 065
     Dates: start: 20080121
  3. PREDNISOLONE [Suspect]
     Dosage: UNKNOWN
     Route: 065
     Dates: start: 20070101
  4. METHOTREXATE [Suspect]
     Dosage: 7.5MG WEEKLY
     Route: 065
     Dates: start: 20071201
  5. ASPIRIN [Concomitant]
     Dosage: UNKNOWN
     Route: 065
  6. ROSIGLITAZONE [Concomitant]
     Dosage: UNKNOWN
     Route: 065
  7. MELOXICAM [Concomitant]
     Dosage: UNKNOWN
     Route: 065
  8. ROSUVASTATIN [Concomitant]
     Dosage: UNKNOWN
     Route: 065
  9. OMEPRAZOLE [Concomitant]
     Dosage: UNKNOWN
     Route: 065
  10. ATENOLOL [Concomitant]
     Dosage: UNKNOWN
     Route: 065
  11. GLICLAZIDE [Concomitant]
     Dosage: UNKNOWN
     Route: 065
  12. FUROSEMIDE [Concomitant]
     Dosage: UNKNOWN
     Route: 065

REACTIONS (3)
  - BETA HAEMOLYTIC STREPTOCOCCAL INFECTION [None]
  - MULTI-ORGAN FAILURE [None]
  - SEPSIS [None]
